FAERS Safety Report 4895182-1 (Version None)
Quarter: 2006Q1

REPORT INFORMATION
  Report Type: 
  Country: None (occurrence: None)
  Receive Date: 20060130
  Receipt Date: 20060117
  Transmission Date: 20060701
  Serious: Yes (Hospitalization)
  Sender: FDA-Public Use
  Company Number: ES-JNJFOC-20060105277

PATIENT
  Age: 67 Year
  Sex: Female

DRUGS (2)
  1. TRAMADOL HCL [Suspect]
     Indication: NEURALGIA
     Route: 048
  2. LYRICA [Concomitant]
     Indication: NEURALGIA
     Route: 065

REACTIONS (1)
  - MUSCLE SPASMS [None]
